FAERS Safety Report 4454750-1 (Version None)
Quarter: 2004Q3

REPORT INFORMATION
  Report Type: 
  Country: None (occurrence: None)
  Receive Date: 20040920
  Receipt Date: 20040920
  Transmission Date: 20050211
  Serious: Yes (Other)
  Sender: FDA-Public Use
  Company Number: None

PATIENT
  Sex: Female

DRUGS (3)
  1. LANOXIN [Suspect]
     Indication: CARDIOMYOPATHY
     Dosage: 125 MCG/GREATER THAN 5 YEARS
  2. LANOXIN [Suspect]
     Indication: CORONARY ARTERY DISEASE
     Dosage: 125 MCG/GREATER THAN 5 YEARS
  3. DIABETA [Suspect]
     Indication: DIABETES MELLITUS
     Dosage: 2.5 MG/ GREATER THAN 5 YEARS

REACTIONS (1)
  - URTICARIA [None]
